FAERS Safety Report 9778206 (Version 1)
Quarter: 2013Q4

REPORT INFORMATION
  Report Type: Spontaneous
  Country: US (occurrence: US)
  Receive Date: 20131223
  Receipt Date: 20131223
  Transmission Date: 20140711
  Serious: No
  Sender: FDA-Public Use
  Company Number: US-009507513-1311USA010990

PATIENT
  Sex: Male

DRUGS (1)
  1. DULERA [Suspect]
     Dosage: TWO INHALATIONS EVERY 12 HOURS
     Route: 055

REACTIONS (3)
  - Product taste abnormal [Unknown]
  - Incorrect dose administered by device [Unknown]
  - No adverse event [Unknown]
